FAERS Safety Report 8595866-8 (Version None)
Quarter: 2012Q3

REPORT INFORMATION
  Report Type: 
  Country: None (occurrence: None)
  Receive Date: 20120815
  Receipt Date: 19920330
  Transmission Date: 20120928
  Serious: Yes (Other)
  Sender: FDA-Public Use
  Company Number: US-ROCHE-1098866

PATIENT
  Age: 51 Year
  Sex: Female

DRUGS (3)
  1. MORPHINE [Concomitant]
  2. VERSED [Concomitant]
  3. ACTIVASE [Suspect]
     Indication: ACUTE MYOCARDIAL INFARCTION

REACTIONS (8)
  - PYREXIA [None]
  - DEPRESSED LEVEL OF CONSCIOUSNESS [None]
  - HYPOTENSION [None]
  - CHEST PAIN [None]
  - BRADYCARDIA [None]
  - HAEMORRHAGE [None]
  - CARDIAC FAILURE CONGESTIVE [None]
  - RESTLESSNESS [None]
